FAERS Safety Report 11735157 (Version 3)
Quarter: 2016Q1

REPORT INFORMATION
  Report Type: Spontaneous
  Country: US (occurrence: US)
  Receive Date: 20151113
  Receipt Date: 20160203
  Transmission Date: 20160525
  Serious: Yes (Hospitalization)
  Sender: FDA-Public Use
  Company Number: US-BEH-2015055651

PATIENT
  Age: 79 Year
  Sex: Female
  Weight: 56 kg

DRUGS (16)
  1. ASPIRIN. [Concomitant]
     Active Substance: ASPIRIN
  2. LUNESTA [Concomitant]
     Active Substance: ESZOPICLONE
  3. VITAMIN B12 [Concomitant]
     Active Substance: CYANOCOBALAMIN
  4. NAPROSYN [Concomitant]
     Active Substance: NAPROXEN
  5. VITAMIN B COMPLEX [Concomitant]
     Active Substance: CYANOCOBALAMIN\DEXPANTHENOL\NIACINAMIDE\PYRIDOXINE HYDROCHLORIDE\RIBOFLAVIN 5^-PHOSPHATE SODIUM\THIAMINE HYDROCHLORIDE\VITAMIN B COMPLEX
  6. XANAX [Concomitant]
     Active Substance: ALPRAZOLAM
  7. CALCIUM [Concomitant]
     Active Substance: CALCIUM
  8. CLONIDINE. [Concomitant]
     Active Substance: CLONIDINE
  9. DIPHENHYDRAMINE. [Concomitant]
     Active Substance: DIPHENHYDRAMINE
  10. CARVEDILOL. [Concomitant]
     Active Substance: CARVEDILOL
  11. HIZENTRA [Suspect]
     Active Substance: HUMAN IMMUNOGLOBULIN G
     Indication: IMMUNODEFICIENCY COMMON VARIABLE
     Dosage: START DATE: ??-JAN-2011
     Route: 058
  12. TEMAZEPAM. [Concomitant]
     Active Substance: TEMAZEPAM
  13. EPIPEN [Concomitant]
     Active Substance: EPINEPHRINE
  14. LMX [Concomitant]
     Active Substance: LIDOCAINE
  15. CLONIDINE. [Concomitant]
     Active Substance: CLONIDINE
  16. BIOTIN [Concomitant]
     Active Substance: BIOTIN

REACTIONS (4)
  - Hypertension [Recovered/Resolved]
  - Atrial fibrillation [Recovered/Resolved]
  - Hypertensive crisis [Recovered/Resolved]
  - Headache [Recovered/Resolved]

NARRATIVE: CASE EVENT DATE: 20151102
